FAERS Safety Report 20343939 (Version 1)
Quarter: 2022Q1

REPORT INFORMATION
  Report Type: Spontaneous
  Country: TR (occurrence: TR)
  Receive Date: 20220118
  Receipt Date: 20220118
  Transmission Date: 20220423
  Serious: Yes (Other)
  Sender: FDA-Public Use
  Company Number: TR-TOLMAR, INC.-22TR032422

PATIENT
  Age: 70 Year
  Sex: Male

DRUGS (10)
  1. ELIGARD [Suspect]
     Active Substance: LEUPROLIDE ACETATE
     Indication: Prostate cancer
     Dosage: UNK
  2. XTANDI [Suspect]
     Active Substance: ENZALUTAMIDE
     Indication: Hormone-refractory prostate cancer
     Dosage: UNK
     Dates: start: 20201208
  3. BICALUTAMIDE [Suspect]
     Active Substance: BICALUTAMIDE
     Indication: Prostate cancer
     Dosage: UNK
  4. DOCETAXEL [Suspect]
     Active Substance: DOCETAXEL
     Indication: Hormone-refractory prostate cancer
     Dosage: 75 MG/M2, Q 3 WEEK; 3 CURES OF DOCETAXEL WERE APPLIED
     Dates: start: 20180629, end: 20180810
  5. ZOLEDRONIC ACID [Concomitant]
     Active Substance: ZOLEDRONIC ACID
     Indication: Hormone-refractory prostate cancer
     Dosage: 4 MILLIGRAM, Q 1 MONTH (EVERY 28)
     Dates: start: 20180629, end: 20180810
  6. ZYTIGA [Concomitant]
     Active Substance: ABIRATERONE ACETATE
     Indication: Product used for unknown indication
     Dosage: UNK
     Dates: start: 20180817
  7. DELTACORTRIL [Concomitant]
     Active Substance: PREDNISOLONE
     Indication: Product used for unknown indication
     Dosage: UNK
     Dates: start: 20180817
  8. METFORMIN [Concomitant]
     Active Substance: METFORMIN HYDROCHLORIDE
     Indication: Type 2 diabetes mellitus
  9. INSULIN NOS [Concomitant]
     Active Substance: INSULIN NOS
     Indication: Type 2 diabetes mellitus
  10. RADIATION THERAPY [Concomitant]
     Active Substance: RADIATION THERAPY
     Indication: Hormone-refractory prostate cancer

REACTIONS (3)
  - Febrile neutropenia [Unknown]
  - Prostate cancer [Recovering/Resolving]
  - Prostatic specific antigen increased [Recovering/Resolving]

NARRATIVE: CASE EVENT DATE: 20180101
